FAERS Safety Report 6601403-7 (Version None)
Quarter: 2010Q1

REPORT INFORMATION
  Report Type: 
  Country: None (occurrence: None)
  Receive Date: 20100224
  Receipt Date: 20100224
  Transmission Date: 20100710
  Serious: No
  Sender: FDA-Public Use
  Company Number: None

PATIENT
  Age: 52 Year
  Sex: Male
  Weight: 127.3 kg

DRUGS (4)
  1. CITALOPRAM HYDROBROMIDE [Suspect]
     Indication: DEPRESSION
     Dosage: 60 MG DAILY ORAL
     Route: 048
     Dates: start: 20100204, end: 20100210
  2. CITALOPRAM HYDROBROMIDE [Suspect]
     Indication: SLEEP DISORDER
     Dosage: 60 MG DAILY ORAL
     Route: 048
     Dates: start: 20100204, end: 20100210
  3. TRAZODONE HCL [Suspect]
  4. LEXAPRO [Suspect]

REACTIONS (7)
  - DRUG INEFFECTIVE [None]
  - DRUG WITHDRAWAL SYNDROME [None]
  - DYSPHONIA [None]
  - FATIGUE [None]
  - NIGHTMARE [None]
  - PRODUCT SUBSTITUTION ISSUE [None]
  - SOMNOLENCE [None]
